FAERS Safety Report 9813041 (Version 1)
Quarter: 2014Q1

REPORT INFORMATION
  Report Type: Spontaneous
  Country: US (occurrence: None)
  Receive Date: 20140109
  Receipt Date: 20140109
  Transmission Date: 20141002
  Serious: Yes (Disabling)
  Sender: FDA-Public Use
  Company Number: None

PATIENT
  Age: 24 Year
  Sex: Male
  Weight: 61.24 kg

DRUGS (1)
  1. LEVOFLOXACIN [Suspect]
     Indication: PNEUMONIA
     Dosage: ONCE DAILY
     Route: 048
     Dates: start: 20140104, end: 20140107

REACTIONS (11)
  - Delirium [None]
  - Insomnia [None]
  - Asthenia [None]
  - Hypoxia [None]
  - Pneumonia [None]
  - Fear of death [None]
  - Mental status changes [None]
  - Visual impairment [None]
  - Schizophrenia [None]
  - Psychotic disorder [None]
  - Activities of daily living impaired [None]
